FAERS Safety Report 21208008 (Version 2)
Quarter: 2022Q4

REPORT INFORMATION
  Report Type: Spontaneous
  Country: US (occurrence: US)
  Receive Date: 20220812
  Receipt Date: 20221024
  Transmission Date: 20230113
  Serious: No
  Sender: FDA-Public Use
  Company Number: US-PFIZER INC-PV202200002182

PATIENT
  Age: 70 Year
  Sex: Male
  Weight: 79.38 kg

DRUGS (3)
  1. BRAFTOVI [Suspect]
     Active Substance: ENCORAFENIB
     Indication: Colorectal cancer
     Dosage: 75MG CAPSULE, 4 CAPSULES PER DAY BY MOUTH AT 2PM DAILY TO EQUAL 300MG
     Route: 048
     Dates: start: 2022
  2. CETUXIMAB [Concomitant]
     Active Substance: CETUXIMAB
     Indication: Colorectal cancer
     Dosage: UNKNOWN DOSE INFUSION EVERY 2 WEEKS
     Dates: start: 2022
  3. BENADRYL [Concomitant]
     Active Substance: DIPHENHYDRAMINE HYDROCHLORIDE
     Dosage: UNKNOWN DOSE 2 TABLETS ONCE EVERY TWO WEEKS BY MOUTH
     Route: 048

REACTIONS (2)
  - Neoplasm progression [Unknown]
  - Weight decreased [Recovering/Resolving]
